FAERS Safety Report 5009409-9 (Version None)
Quarter: 2006Q2

REPORT INFORMATION
  Report Type: 
  Country: None (occurrence: None)
  Receive Date: 20060524
  Receipt Date: 20060515
  Transmission Date: 20061013
  Serious: Yes (Other)
  Sender: FDA-Public Use
  Company Number: PHRM2006FR01560

PATIENT
  Sex: Female

DRUGS (1)
  1. FEMARA [Suspect]
     Route: 048

REACTIONS (1)
  - PYELONEPHRITIS [None]
